FAERS Safety Report 13713306 (Version 1)
Quarter: 2017Q3

REPORT INFORMATION
  Report Type: Spontaneous
  Country: GB (occurrence: GB)
  Receive Date: 20170704
  Receipt Date: 20170704
  Transmission Date: 20171127
  Serious: Yes (Other)
  Sender: FDA-Public Use
  Company Number: GB-ROCHE-1958182

PATIENT
  Age: 27 Year
  Sex: Female
  Weight: 74 kg

DRUGS (1)
  1. ORLISTAT. [Suspect]
     Active Substance: ORLISTAT
     Indication: WEIGHT LOSS POOR
     Route: 048
     Dates: start: 20170620, end: 20170621

REACTIONS (2)
  - Renal pain [Not Recovered/Not Resolved]
  - Dysuria [Not Recovered/Not Resolved]

NARRATIVE: CASE EVENT DATE: 20170620
